FAERS Safety Report 13072961 (Version 1)
Quarter: 2016Q4

REPORT INFORMATION
  Report Type: Spontaneous
  Country: None (occurrence: US)
  Receive Date: 20161229
  Receipt Date: 20161229
  Transmission Date: 20170207
  Serious: Yes (Other)
  Sender: FDA-Public Use
  Company Number: US-THE MENTHOLATUM COMPANY-1061381

PATIENT
  Age: 64 Year
  Sex: Female

DRUGS (1)
  1. EQUATE PAIN RELIEVING ULTRA STRENGTH [Suspect]
     Active Substance: CAMPHOR (SYNTHETIC)\MENTHOL\METHYL SALICYLATE
     Indication: MYALGIA
     Route: 061
     Dates: start: 20161118, end: 20161118

REACTIONS (3)
  - Chemical injury [Recovering/Resolving]
  - Burns second degree [None]
  - Application site burn [None]

NARRATIVE: CASE EVENT DATE: 20161123
